FAERS Safety Report 12776411 (Version 1)
Quarter: 2016Q3

REPORT INFORMATION
  Report Type: Report from Study
  Country: DE (occurrence: DE)
  Receive Date: 20160923
  Receipt Date: 20160923
  Transmission Date: 20161109
  Serious: Yes (Hospitalization)
  Sender: FDA-Public Use
  Company Number: US-ASTRAZENECA-2016SF01553

PATIENT
  Age: 243 Day
  Sex: Female

DRUGS (5)
  1. SYNAGIS [Suspect]
     Active Substance: PALIVIZUMAB
     Indication: ANTIVIRAL PROPHYLAXIS
     Dosage: 70.0MG UNKNOWN
     Route: 030
     Dates: start: 20101111, end: 20101111
  2. SYNAGIS [Suspect]
     Active Substance: PALIVIZUMAB
     Indication: ANTIVIRAL PROPHYLAXIS
     Dosage: 90.0MG UNKNOWN
     Route: 030
     Dates: start: 20101210, end: 20101210
  3. SYNAGIS [Suspect]
     Active Substance: PALIVIZUMAB
     Indication: ANTIVIRAL PROPHYLAXIS
     Dosage: 100.0MG UNKNOWN
     Route: 030
     Dates: start: 20110107, end: 20110107
  4. SYNAGIS [Suspect]
     Active Substance: PALIVIZUMAB
     Indication: ANTIVIRAL PROPHYLAXIS
     Dosage: 100.0MG UNKNOWN
     Route: 030
     Dates: start: 20110304, end: 20110304
  5. SYNAGIS [Suspect]
     Active Substance: PALIVIZUMAB
     Indication: ANTIVIRAL PROPHYLAXIS
     Dosage: 115.0MG UNKNOWN
     Route: 030
     Dates: start: 20110204, end: 20110204

REACTIONS (1)
  - Pneumonia [Unknown]

NARRATIVE: CASE EVENT DATE: 201102
